FAERS Safety Report 6756113-2 (Version None)
Quarter: 2010Q2

REPORT INFORMATION
  Report Type: 
  Country: None (occurrence: None)
  Receive Date: 20100604
  Receipt Date: 20100525
  Transmission Date: 20101027
  Serious: Yes (Other)
  Sender: FDA-Public Use
  Company Number: US-PFIZER INC-2010066386

PATIENT
  Sex: Male
  Weight: 77.098 kg

DRUGS (3)
  1. VIAGRA [Suspect]
     Indication: ERECTILE DYSFUNCTION
     Dosage: 100 MG, AS NEEDED
     Route: 048
     Dates: start: 20100301
  2. OXYCODONE [Concomitant]
     Indication: PAIN
     Dosage: 30 MG, UNK
  3. XANAX [Concomitant]
     Indication: ANXIETY
     Dosage: 2 MG, UNK

REACTIONS (1)
  - AMPHETAMINES POSITIVE [None]
